FAERS Safety Report 4655911-9 (Version None)
Quarter: 2005Q2

REPORT INFORMATION
  Report Type: 
  Country: None (occurrence: None)
  Receive Date: 20050505
  Receipt Date: 20050421
  Transmission Date: 20051028
  Serious: Yes (Hospitalization, Other)
  Sender: FDA-Public Use
  Company Number: SUS1-2005-00350

PATIENT
  Age: 59 Year
  Sex: Male

DRUGS (4)
  1. PENTASA [Suspect]
     Indication: CROHN'S DISEASE
     Dosage: 2 G DAILY, ORAL
     Route: 048
     Dates: start: 20030801, end: 20050207
  2. OMEPRAZOLE [Concomitant]
  3. CILAZAPRIL (CILAZAPRIL) [Concomitant]
  4. SIMVASTATIN [Concomitant]

REACTIONS (3)
  - DIARRHOEA [None]
  - PERICARDIAL EFFUSION [None]
  - VOMITING [None]
